FAERS Safety Report 20004544 (Version 7)
Quarter: 2025Q3

REPORT INFORMATION
  Report Type: Report from Study
  Country: CA (occurrence: CA)
  Receive Date: 20211027
  Receipt Date: 20250710
  Transmission Date: 20251021
  Serious: Yes (Hospitalization, Other)
  Sender: TAKEDA
  Company Number: CA-TAKEDA-2016TUS011868

PATIENT
  Sex: Female

DRUGS (10)
  1. VEDOLIZUMAB [Suspect]
     Active Substance: VEDOLIZUMAB
     Indication: Colitis ulcerative
  2. VEDOLIZUMAB [Suspect]
     Active Substance: VEDOLIZUMAB
     Dosage: 300 MILLIGRAM, Q6WEEKS
     Dates: start: 20160412
  3. VEDOLIZUMAB [Suspect]
     Active Substance: VEDOLIZUMAB
     Dosage: 300 MILLIGRAM, Q4WEEKS
     Dates: start: 20170812
  4. VEDOLIZUMAB [Suspect]
     Active Substance: VEDOLIZUMAB
     Dosage: 300 MILLIGRAM, Q4WEEKS
  5. VEDOLIZUMAB [Suspect]
     Active Substance: VEDOLIZUMAB
     Dosage: 300 MILLIGRAM, Q4WEEKS
  6. FOLATE SODIUM [Concomitant]
     Active Substance: FOLATE SODIUM
  7. CALCIUM [Concomitant]
     Active Substance: CALCIUM
  8. ACCUTANE [Concomitant]
     Active Substance: ISOTRETINOIN
     Indication: Acne
  9. PREDNISONE [Concomitant]
     Active Substance: PREDNISONE
  10. VITAMIN D3 [Concomitant]
     Active Substance: CHOLECALCIFEROL

REACTIONS (12)
  - Colitis ulcerative [Not Recovered/Not Resolved]
  - Migraine with aura [Recovering/Resolving]
  - Visual impairment [Recovering/Resolving]
  - Ataxia [Recovering/Resolving]
  - Muscular weakness [Recovering/Resolving]
  - Pneumonia [Recovered/Resolved]
  - Headache [Recovering/Resolving]
  - Inflammatory marker increased [Not Recovered/Not Resolved]
  - COVID-19 [Unknown]
  - Therapeutic reaction time decreased [Unknown]
  - Off label use [Unknown]
  - Upper respiratory tract infection [Recovered/Resolved]

NARRATIVE: CASE EVENT DATE: 20160101
